FAERS Safety Report 16805495 (Version 7)
Quarter: 2020Q1

REPORT INFORMATION
  Report Type: Spontaneous
  Country: ES (occurrence: ES)
  Receive Date: 20190913
  Receipt Date: 20200316
  Transmission Date: 20200409
  Serious: Yes (Life-Threatening, Hospitalization)
  Sender: FDA-Public Use
  Company Number: ES-SERVIER-S19009152

PATIENT

DRUGS (8)
  1. ONCASPAR [Suspect]
     Active Substance: PEGASPARGASE
     Indication: B PRECURSOR TYPE ACUTE LEUKAEMIA
     Dosage: 1600 U, SINGLE
     Route: 030
     Dates: start: 20180630, end: 20180630
  2. ONCASPAR [Suspect]
     Active Substance: PEGASPARGASE
     Dosage: 1600 U, SINGLE
     Route: 030
     Dates: start: 20180714, end: 20180714
  3. ONCASPAR [Suspect]
     Active Substance: PEGASPARGASE
     Dosage: 1700 U, SINGLE
     Route: 030
     Dates: start: 20190415, end: 20190415
  4. ONCASPAR [Suspect]
     Active Substance: PEGASPARGASE
     Dosage: 1800 U, SINGLE
     Route: 030
     Dates: start: 20181211, end: 20181211
  5. ONCASPAR [Suspect]
     Active Substance: PEGASPARGASE
     Dosage: 1700 U, SINGLE
     Route: 030
     Dates: start: 20190218, end: 20190218
  6. ONCASPAR [Suspect]
     Active Substance: PEGASPARGASE
     Dosage: 1700 U, SINGLE
     Route: 030
     Dates: start: 20190318, end: 20190318
  7. ONCASPAR [Suspect]
     Active Substance: PEGASPARGASE
     Dosage: 1700 U, SINGLE
     Route: 030
     Dates: start: 20190401, end: 20190401
  8. ONCASPAR [Suspect]
     Active Substance: PEGASPARGASE
     Dosage: 1700 U, SINGLE
     Route: 030
     Dates: start: 20190304, end: 20190304

REACTIONS (3)
  - Pancreatic pseudocyst [Unknown]
  - Sepsis [Unknown]
  - Pancreatitis necrotising [Recovered/Resolved]

NARRATIVE: CASE EVENT DATE: 2019
